FAERS Safety Report 14016378 (Version 2)
Quarter: 2017Q4

REPORT INFORMATION
  Report Type: Spontaneous
  Country: US (occurrence: US)
  Receive Date: 20170927
  Receipt Date: 20171214
  Transmission Date: 20180321
  Serious: Yes (Other)
  Sender: FDA-Public Use
  Company Number: US-SA-2017SA051033

PATIENT
  Sex: Female

DRUGS (2)
  1. LEMTRADA [Suspect]
     Active Substance: ALEMTUZUMAB
     Route: 041
  2. LEMTRADA [Suspect]
     Active Substance: ALEMTUZUMAB
     Route: 041
     Dates: end: 201606

REACTIONS (6)
  - Headache [Unknown]
  - Malaise [Unknown]
  - Blood urine present [Unknown]
  - Immune system disorder [Unknown]
  - Urinary retention [Unknown]
  - Fatigue [Unknown]

NARRATIVE: CASE EVENT DATE: 201711
